FAERS Safety Report 9500719 (Version 1)
Quarter: 2013Q3

REPORT INFORMATION
  Report Type: Spontaneous
  Country: US (occurrence: US)
  Receive Date: 20130905
  Receipt Date: 20130905
  Transmission Date: 20140515
  Serious: Yes (Other)
  Sender: FDA-Public Use
  Company Number: US-BAYER-2013-107101

PATIENT
  Age: 73 Year
  Sex: Female
  Weight: 68.03 kg

DRUGS (1)
  1. BAYER [Suspect]
     Indication: ANALGESIC THERAPY
     Dosage: 1 DF, PRN
     Route: 048
     Dates: start: 201308, end: 201308

REACTIONS (1)
  - Dermatitis bullous [Not Recovered/Not Resolved]
